FAERS Safety Report 4773665-2 (Version None)
Quarter: 2005Q3

REPORT INFORMATION
  Report Type: 
  Country: None (occurrence: None)
  Receive Date: 20050914
  Receipt Date: 20050815
  Transmission Date: 20060218
  Serious: Yes (Other)
  Sender: FDA-Public Use
  Company Number: 414465

PATIENT
  Age: 50 Year
  Sex: Female
  Weight: 62.6 kg

DRUGS (4)
  1. BONIVA [Suspect]
     Indication: OSTEOPOROSIS
     Dosage: 150 MG 1 PER MONTH ORAL
     Route: 048
     Dates: start: 20050715
  2. CONCERTA (METHYLPHENIDATE) [Concomitant]
  3. SYNTHROID [Concomitant]
  4. DULOXETINE (DULOXETINE) [Concomitant]

REACTIONS (8)
  - ABDOMINAL PAIN [None]
  - ANOREXIA [None]
  - ASTHENIA [None]
  - BACTERIAL INFECTION [None]
  - GASTROENTERITIS BACTERIAL [None]
  - MYALGIA [None]
  - NAUSEA [None]
  - PYREXIA [None]
